FAERS Safety Report 9795540 (Version 1)
Quarter: 2014Q1

REPORT INFORMATION
  Report Type: Report from Study
  Country: LB (occurrence: LB)
  Receive Date: 20140103
  Receipt Date: 20140103
  Transmission Date: 20141002
  Serious: Yes (Hospitalization)
  Sender: FDA-Public Use
  Company Number: LB-SA-2013SA135858

PATIENT
  Age: 55 Year
  Sex: Male

DRUGS (7)
  1. LANTUS SOLOSTAR [Suspect]
     Indication: DIABETES MELLITUS
     Dosage: DOSE:14 UNIT(S)
     Route: 058
     Dates: start: 2013
  2. GALVUSMET [Concomitant]
     Indication: DIABETES MELLITUS
     Route: 048
  3. DIAMERIL [Concomitant]
     Indication: DIABETES MELLITUS
     Route: 048
  4. APO-ATENOL [Concomitant]
     Route: 048
  5. LIPANTHYL [Concomitant]
     Route: 048
  6. PLAVIX [Concomitant]
     Route: 048
  7. SOLOSTAR [Concomitant]
     Dates: start: 2013

REACTIONS (1)
  - Coronary artery disease [Unknown]
